FAERS Safety Report 10192628 (Version 1)
Quarter: 2014Q2

REPORT INFORMATION
  Report Type: Spontaneous
  Country: US (occurrence: US)
  Receive Date: 20140523
  Receipt Date: 20140523
  Transmission Date: 20141212
  Serious: Yes (Hospitalization)
  Sender: FDA-Public Use
  Company Number: US-ELI_LILLY_AND_COMPANY-US201405004792

PATIENT
  Sex: Male

DRUGS (2)
  1. HUMALOG 25% LISPRO, 75% NPL [Suspect]
     Indication: TYPE 2 DIABETES MELLITUS
     Dosage: 45 DF, EACH MORNING
     Route: 065
  2. HUMALOG 25% LISPRO, 75% NPL [Suspect]
     Dosage: 35 DF, EACH EVENING
     Route: 065

REACTIONS (4)
  - Cerebrovascular accident [Unknown]
  - Cataract [Unknown]
  - Weight increased [Unknown]
  - Gait disturbance [Not Recovered/Not Resolved]
